FAERS Safety Report 10638771 (Version 8)
Quarter: 2015Q2

REPORT INFORMATION
  Report Type: Spontaneous
  Country: US (occurrence: US)
  Receive Date: 20141208
  Receipt Date: 20150527
  Transmission Date: 20150821
  Serious: Yes (Hospitalization, Disabling, Other)
  Sender: FDA-Public Use
  Company Number: US-009507513-0804USA03285

PATIENT
  Sex: Male

DRUGS (1)
  1. PROPECIA [Suspect]
     Active Substance: FINASTERIDE
     Indication: ALOPECIA
     Dosage: 1 MG, QD
     Route: 048
     Dates: start: 20071204, end: 20071227

REACTIONS (46)
  - Cognitive disorder [Not Recovered/Not Resolved]
  - Depression [Unknown]
  - Insomnia [Not Recovered/Not Resolved]
  - Hormone level abnormal [Unknown]
  - Prostatitis [Not Recovered/Not Resolved]
  - Amnesia [Not Recovered/Not Resolved]
  - Adrenal disorder [Not Recovered/Not Resolved]
  - Blood cortisol increased [Not Recovered/Not Resolved]
  - Muscle atrophy [Unknown]
  - Flat affect [Unknown]
  - Tinnitus [Unknown]
  - Palpitations [Unknown]
  - Abdominal pain [Unknown]
  - Dyspepsia [Unknown]
  - Suicidal ideation [Recovering/Resolving]
  - Sexual dysfunction [Unknown]
  - Headache [Not Recovered/Not Resolved]
  - Panic attack [Not Recovered/Not Resolved]
  - Disturbance in attention [Not Recovered/Not Resolved]
  - Gastrointestinal disorder [Not Recovered/Not Resolved]
  - Blood testosterone decreased [Not Recovered/Not Resolved]
  - Semen discolouration [Unknown]
  - Bipolar disorder [Unknown]
  - Semen volume decreased [Not Recovered/Not Resolved]
  - Chronic fatigue syndrome [Not Recovered/Not Resolved]
  - Blood oestrogen decreased [Not Recovered/Not Resolved]
  - Asthenia [Unknown]
  - Vision blurred [Unknown]
  - Paraesthesia [Unknown]
  - Sexual dysfunction [Unknown]
  - Loss of libido [Not Recovered/Not Resolved]
  - Food allergy [Not Recovered/Not Resolved]
  - Major depression [Unknown]
  - Testicular atrophy [Unknown]
  - Constipation [Unknown]
  - Ejaculation disorder [Unknown]
  - Dihydrotestosterone decreased [Not Recovered/Not Resolved]
  - Stress [Unknown]
  - Testicular pain [Unknown]
  - Arthralgia [Unknown]
  - Anxiety [Unknown]
  - Erectile dysfunction [Recovering/Resolving]
  - Weight decreased [Not Recovered/Not Resolved]
  - Dark circles under eyes [Not Recovered/Not Resolved]
  - Abdominal distension [Unknown]
  - Migraine [Unknown]

NARRATIVE: CASE EVENT DATE: 200712
